FAERS Safety Report 17941561 (Version 1)
Quarter: 2020Q2

REPORT INFORMATION
  Report Type: Spontaneous
  Country: ZA (occurrence: ZA)
  Receive Date: 20200624
  Receipt Date: 20200624
  Transmission Date: 20200714
  Serious: Yes (Other)
  Sender: FDA-Public Use
  Company Number: ZA-COLLEGIUM PHARMACEUTICAL, INC.-ZA-2020COL000459

PATIENT
  Age: 60 Year
  Sex: Male

DRUGS (1)
  1. TAPENTADOL [Suspect]
     Active Substance: TAPENTADOL
     Indication: BACK PAIN
     Dosage: UNK
     Route: 048

REACTIONS (3)
  - Depression [Recovered/Resolved]
  - Emotional distress [Recovered/Resolved]
  - Depressed mood [Recovered/Resolved]
